FAERS Safety Report 8009687-8 (Version None)
Quarter: 2011Q4

REPORT INFORMATION
  Report Type: 
  Country: None (occurrence: None)
  Receive Date: 20111228
  Receipt Date: 20111215
  Transmission Date: 20120403
  Serious: No
  Sender: FDA-Public Use
  Company Number: US-BIOGENIDEC-2011BI045651

PATIENT
  Age: 38 Year
  Sex: Female

DRUGS (1)
  1. TYSABRI [Suspect]
     Indication: MULTIPLE SCLEROSIS
     Route: 042
     Dates: start: 20090203

REACTIONS (17)
  - PAIN IN EXTREMITY [None]
  - DISTURBANCE IN ATTENTION [None]
  - EAR PAIN [None]
  - CHOLELITHIASIS [None]
  - DECREASED APPETITE [None]
  - DIZZINESS [None]
  - AGEUSIA [None]
  - MULTIPLE SCLEROSIS RELAPSE [None]
  - HEADACHE [None]
  - DIARRHOEA [None]
  - TREMOR [None]
  - LETHARGY [None]
  - MUSCLE TWITCHING [None]
  - MUSCLE TIGHTNESS [None]
  - ALTERED VISUAL DEPTH PERCEPTION [None]
  - FIBROMYALGIA [None]
  - MICTURITION URGENCY [None]
